FAERS Safety Report 15954153 (Version 1)
Quarter: 2019Q1

REPORT INFORMATION
  Report Type: Spontaneous
  Country: CZ (occurrence: CZ)
  Receive Date: 20190212
  Receipt Date: 20190212
  Transmission Date: 20190417
  Serious: Yes (Life-Threatening, Hospitalization, Disabling, Other)
  Sender: FDA-Public Use
  Company Number: CZ-009507513-1902CZE000296

PATIENT
  Age: 73 Year
  Sex: Female

DRUGS (12)
  1. CLOPIDOGREL [Concomitant]
     Active Substance: CLOPIDOGREL BISULFATE
  2. APO OME [Concomitant]
     Active Substance: OMEPRAZOLE
     Indication: PROPHYLAXIS AGAINST GASTROINTESTINAL ULCER
  3. BETAXOLOL HYDROCHLORIDE. [Concomitant]
     Active Substance: BETAXOLOL HYDROCHLORIDE
  4. MERTENIL [Suspect]
     Active Substance: ROSUVASTATIN CALCIUM
     Indication: HYPERCHOLESTEROLAEMIA
     Dosage: DOSAGE: 1 TABLET IN THE MORNING AFTER MEAL, 1-0-0
     Route: 048
     Dates: start: 201802, end: 201804
  5. DICLOFENAC [Concomitant]
     Active Substance: DICLOFENAC
     Dosage: ALREADY 5 YEARS
  6. ESSENTIALE FORTE (PHOSPHOLIPIDS (UNSPECIFIED)) [Concomitant]
     Indication: HEPATIC CYST
  7. ZOLETORV [Suspect]
     Active Substance: ATORVASTATIN CALCIUM\EZETIMIBE
     Indication: HYPERCHOLESTEROLAEMIA
     Dosage: 1-0-0
     Route: 048
     Dates: start: 201804, end: 201812
  8. DETRALEX [Concomitant]
     Active Substance: DIOSMIN\HESPERIDIN
  9. VIGANTOL [Concomitant]
     Active Substance: CHOLECALCIFEROL
  10. STACYL [Concomitant]
  11. PRESTARIUM NEO COMBI [Concomitant]
     Active Substance: INDAPAMIDE\PERINDOPRIL ARGININE
  12. PROLIA [Concomitant]
     Active Substance: DENOSUMAB
     Indication: OSTEOPOROSIS
     Dosage: UNK UNK, Q6M

REACTIONS (15)
  - Rhabdomyolysis [Recovered/Resolved with Sequelae]
  - Chromaturia [Unknown]
  - Feeling hot [Unknown]
  - Muscular weakness [Unknown]
  - Gait inability [Recovering/Resolving]
  - Muscle spasms [Unknown]
  - Pain in extremity [Not Recovered/Not Resolved]
  - Nausea [Unknown]
  - Paraesthesia [Unknown]
  - Myalgia [Not Recovered/Not Resolved]
  - Fatigue [Unknown]
  - Decreased appetite [Unknown]
  - Vomiting [Unknown]
  - Muscle spasms [Unknown]
  - Abnormal loss of weight [Unknown]

NARRATIVE: CASE EVENT DATE: 201802
